FAERS Safety Report 18188495 (Version 1)
Quarter: 2020Q3

REPORT INFORMATION
  Report Type: Spontaneous
  Country: US (occurrence: US)
  Receive Date: 20200824
  Receipt Date: 20200824
  Transmission Date: 20201103
  Serious: Yes (Hospitalization, Other)
  Sender: FDA-Public Use
  Company Number: US-PURDUE-USA-2020-0161132

PATIENT
  Sex: Female

DRUGS (2)
  1. PERCOCET [Suspect]
     Active Substance: ACETAMINOPHEN\OXYCODONE HYDROCHLORIDE
     Indication: ANKLE FRACTURE
     Dosage: UNK
     Route: 065
     Dates: start: 2003
  2. OXYCONTIN [Suspect]
     Active Substance: OXYCODONE HYDROCHLORIDE
     Indication: ANKLE FRACTURE
     Dosage: UNK
     Route: 048
     Dates: start: 2003

REACTIONS (10)
  - General physical health deterioration [Unknown]
  - Personality disorder [Unknown]
  - Muscle twitching [Unknown]
  - Overdose [Unknown]
  - Drug dependence [Unknown]
  - Surgery [Unknown]
  - Mental disorder [Unknown]
  - Drug abuse [Unknown]
  - Emotional distress [Unknown]
  - Self esteem decreased [Unknown]
